FAERS Safety Report 23486431 (Version 1)
Quarter: 2024Q1

REPORT INFORMATION
  Report Type: Spontaneous
  Country: US (occurrence: None)
  Receive Date: 20240205
  Receipt Date: 20240205
  Transmission Date: 20240409
  Serious: Yes (Hospitalization)
  Sender: FDA-Public Use
  Company Number: None

PATIENT
  Sex: Female

DRUGS (1)
  1. CAPECITABINE [Suspect]
     Active Substance: CAPECITABINE
     Indication: Colon cancer
     Dosage: TAKE 4 TABLETS BY MOUTH AFTER BREAKFAST AND 3 TABLETS AFTER DINNER FOR 14 DAYS ON AND 7 DAYS OFF. ?
     Route: 048
     Dates: start: 202401

REACTIONS (1)
  - Diarrhoea [None]
